FAERS Safety Report 14713570 (Version 1)
Quarter: 2018Q2

REPORT INFORMATION
  Report Type: Spontaneous
  Country: US (occurrence: US)
  Receive Date: 20180404
  Receipt Date: 20180404
  Transmission Date: 20180711
  Serious: Yes (Other)
  Sender: FDA-Public Use
  Company Number: US-WEST-WARD PHARMACEUTICALS CORP.-US-H14001-18-02416

PATIENT

DRUGS (3)
  1. PROTEASOME INHIBITOR [Suspect]
     Active Substance: UNSPECIFIED INGREDIENT
     Indication: CHEMOTHERAPY
     Route: 065
  2. LENALIDOMIDE [Suspect]
     Active Substance: LENALIDOMIDE
     Indication: CHEMOTHERAPY
     Route: 065
  3. DEXAMETHASONE. [Suspect]
     Active Substance: DEXAMETHASONE
     Indication: CHEMOTHERAPY
     Route: 065

REACTIONS (1)
  - Graft versus host disease [Unknown]
